FAERS Safety Report 7132233-8 (Version None)
Quarter: 2010Q4

REPORT INFORMATION
  Report Type: 
  Country: None (occurrence: None)
  Receive Date: 20101202
  Receipt Date: 20101019
  Transmission Date: 20110411
  Serious: Yes (Death, Hospitalization, Other)
  Sender: FDA-Public Use
  Company Number: US-BAXTER-2008BH010988

PATIENT
  Age: 9 Year
  Sex: Female
  Weight: 33 kg

DRUGS (71)
  1. HEPARIN SODIUM INJECTION [Suspect]
     Indication: INTRAVENOUS CATHETER MANAGEMENT
     Route: 042
     Dates: start: 20080112
  2. HEPARIN SODIUM INJECTION [Suspect]
     Indication: CRANIECTOMY
     Route: 042
     Dates: start: 20080112
  3. HEPARIN SODIUM INJECTION [Suspect]
     Indication: SUBDURAL EMPYEMA
     Route: 042
     Dates: start: 20080112
  4. HEPARIN SODIUM INJECTION [Suspect]
     Route: 042
     Dates: start: 20080112, end: 20080112
  5. HEPARIN SODIUM INJECTION [Suspect]
     Route: 042
     Dates: start: 20080112, end: 20080112
  6. HEPARIN SODIUM INJECTION [Suspect]
     Route: 042
     Dates: start: 20080112, end: 20080112
  7. HEPARIN SODIUM INJECTION [Suspect]
     Route: 042
     Dates: start: 20080112, end: 20080207
  8. HEPARIN SODIUM INJECTION [Suspect]
     Route: 042
     Dates: start: 20080112, end: 20080207
  9. HEPARIN SODIUM INJECTION [Suspect]
     Route: 042
     Dates: start: 20080112, end: 20080207
  10. HEPARIN SODIUM INJECTION [Suspect]
     Route: 051
     Dates: start: 20080208
  11. HEPARIN SODIUM INJECTION [Suspect]
     Route: 051
     Dates: start: 20080208
  12. HEPARIN SODIUM INJECTION [Suspect]
     Route: 051
     Dates: start: 20080208
  13. HEPARIN SODIUM INJECTION [Suspect]
     Route: 042
     Dates: start: 20080209
  14. HEPARIN SODIUM INJECTION [Suspect]
     Route: 042
     Dates: start: 20080209
  15. HEPARIN SODIUM INJECTION [Suspect]
     Route: 042
     Dates: start: 20080209
  16. HEPARIN SODIUM INJECTION [Suspect]
     Route: 042
     Dates: start: 20080115, end: 20080115
  17. HEPARIN SODIUM INJECTION [Suspect]
     Route: 042
     Dates: start: 20080115, end: 20080115
  18. HEPARIN SODIUM INJECTION [Suspect]
     Route: 042
     Dates: start: 20080115, end: 20080115
  19. HEPARIN SODIUM INJECTION [Suspect]
     Route: 042
     Dates: start: 20080112, end: 20080202
  20. HEPARIN SODIUM INJECTION [Suspect]
     Route: 042
     Dates: start: 20080112, end: 20080202
  21. HEPARIN SODIUM INJECTION [Suspect]
     Route: 042
     Dates: start: 20080112, end: 20080202
  22. HEPARIN SODIUM INJECTION [Suspect]
     Route: 040
     Dates: start: 20080112, end: 20080112
  23. HEPARIN SODIUM INJECTION [Suspect]
     Route: 040
     Dates: start: 20080112, end: 20080112
  24. HEPARIN SODIUM INJECTION [Suspect]
     Route: 040
     Dates: start: 20080112, end: 20080112
  25. HEPARIN SODIUM INJECTION [Suspect]
     Route: 042
     Dates: start: 20080204, end: 20080204
  26. HEPARIN SODIUM INJECTION [Suspect]
     Route: 042
     Dates: start: 20080204, end: 20080204
  27. HEPARIN SODIUM INJECTION [Suspect]
     Route: 042
     Dates: start: 20080204, end: 20080204
  28. HEPARIN SODIUM INJECTION [Suspect]
     Route: 042
     Dates: start: 20080114, end: 20080114
  29. HEPARIN SODIUM INJECTION [Suspect]
     Route: 042
     Dates: start: 20080114, end: 20080114
  30. HEPARIN SODIUM INJECTION [Suspect]
     Route: 042
     Dates: start: 20080114, end: 20080114
  31. HEPARIN SODIUM INJECTION [Suspect]
     Route: 042
     Dates: start: 20080116, end: 20080116
  32. HEPARIN SODIUM INJECTION [Suspect]
     Route: 042
     Dates: start: 20080116, end: 20080116
  33. HEPARIN SODIUM INJECTION [Suspect]
     Route: 042
     Dates: start: 20080116, end: 20080116
  34. HEPARIN SODIUM 5,000 UNITS IN DEXTROSE 5% [Suspect]
     Indication: PRODUCT USED FOR UNKNOWN INDICATION
     Route: 042
     Dates: start: 20080112, end: 20080120
  35. MOTRIN [Concomitant]
     Indication: PRODUCT USED FOR UNKNOWN INDICATION
     Route: 048
  36. LOVENOX [Concomitant]
     Indication: PRODUCT USED FOR UNKNOWN INDICATION
     Route: 058
  37. PROPOFOL [Concomitant]
     Indication: PRODUCT USED FOR UNKNOWN INDICATION
     Route: 065
  38. VERSED [Concomitant]
     Indication: PRODUCT USED FOR UNKNOWN INDICATION
     Route: 065
  39. VANCOMYCIN [Concomitant]
     Indication: PRODUCT USED FOR UNKNOWN INDICATION
     Route: 065
  40. FENTANYL [Concomitant]
     Indication: PRODUCT USED FOR UNKNOWN INDICATION
     Route: 065
  41. THROMBIN LOCAL SOLUTION [Concomitant]
     Indication: PRODUCT USED FOR UNKNOWN INDICATION
     Route: 065
  42. BACITRACIN [Concomitant]
     Indication: PRODUCT USED FOR UNKNOWN INDICATION
     Route: 065
  43. LIDOCAINE HYDROCHLORIDE IN PLASTIC CONTAINER [Concomitant]
     Indication: PRODUCT USED FOR UNKNOWN INDICATION
     Route: 065
  44. METHYLPREDNISOLONE [Concomitant]
     Indication: PRODUCT USED FOR UNKNOWN INDICATION
     Route: 065
  45. CEFOTAXIME SODIUM [Concomitant]
     Indication: PRODUCT USED FOR UNKNOWN INDICATION
     Route: 065
  46. FLAGYL [Concomitant]
     Indication: PRODUCT USED FOR UNKNOWN INDICATION
     Route: 065
  47. MORPHINE [Concomitant]
     Indication: PRODUCT USED FOR UNKNOWN INDICATION
     Route: 065
  48. ONDANSETRON [Concomitant]
     Indication: PRODUCT USED FOR UNKNOWN INDICATION
     Route: 065
  49. PHENYTOIN [Concomitant]
     Indication: PRODUCT USED FOR UNKNOWN INDICATION
     Route: 065
  50. ACYCLOVIR SODIUM [Concomitant]
     Indication: PRODUCT USED FOR UNKNOWN INDICATION
     Route: 065
  51. ALBUMIN (HUMAN) [Concomitant]
     Indication: PRODUCT USED FOR UNKNOWN INDICATION
     Route: 065
  52. ACETAMINOPHEN [Concomitant]
     Indication: PRODUCT USED FOR UNKNOWN INDICATION
     Route: 065
  53. TEARISOL [Concomitant]
     Indication: PRODUCT USED FOR UNKNOWN INDICATION
     Route: 047
  54. LACRI-LUBE [Concomitant]
     Indication: PRODUCT USED FOR UNKNOWN INDICATION
     Route: 047
  55. MIDAZOLAM [Concomitant]
     Indication: PRODUCT USED FOR UNKNOWN INDICATION
     Route: 065
  56. PAPAVERINE [Concomitant]
     Indication: PRODUCT USED FOR UNKNOWN INDICATION
     Route: 065
  57. PROPOFOL [Concomitant]
     Route: 042
  58. FENTANYL [Concomitant]
     Route: 042
  59. FAMOTIDINE [Concomitant]
     Indication: PRODUCT USED FOR UNKNOWN INDICATION
     Route: 065
  60. ADENOSINE [Concomitant]
     Indication: PRODUCT USED FOR UNKNOWN INDICATION
     Route: 065
  61. AMIODARONE [Concomitant]
     Indication: PRODUCT USED FOR UNKNOWN INDICATION
     Route: 065
  62. ATROPINE [Concomitant]
     Indication: PRODUCT USED FOR UNKNOWN INDICATION
     Route: 065
  63. CALCIUM CHLORIDE [Concomitant]
     Indication: PRODUCT USED FOR UNKNOWN INDICATION
     Route: 065
  64. EPINEPHRINE [Concomitant]
     Indication: PRODUCT USED FOR UNKNOWN INDICATION
     Route: 065
  65. FLUMAZENIL [Concomitant]
     Indication: PRODUCT USED FOR UNKNOWN INDICATION
     Route: 065
  66. LIDOCAINE HYDROCHLORIDE IN PLASTIC CONTAINER [Concomitant]
     Route: 065
  67. MAGNESIUM SULFATE [Concomitant]
     Indication: PRODUCT USED FOR UNKNOWN INDICATION
     Route: 065
  68. NALOXONE [Concomitant]
     Indication: PRODUCT USED FOR UNKNOWN INDICATION
     Route: 065
  69. PROCAINAMIDE [Concomitant]
     Indication: PRODUCT USED FOR UNKNOWN INDICATION
     Route: 065
  70. SODIUM BICARBONATE [Concomitant]
     Indication: PRODUCT USED FOR UNKNOWN INDICATION
     Route: 065
  71. CEFUROXIME [Concomitant]
     Indication: PRODUCT USED FOR UNKNOWN INDICATION
     Route: 065

REACTIONS (34)
  - ABNORMAL BEHAVIOUR [None]
  - ACIDOSIS [None]
  - AGITATION [None]
  - APHASIA [None]
  - APNOEA [None]
  - BLOOD PRESSURE INCREASED [None]
  - BRADYCARDIA [None]
  - CARDIAC ARREST [None]
  - CARDIAC FAILURE [None]
  - CARDIOGENIC SHOCK [None]
  - CARDIOPULMONARY FAILURE [None]
  - CONVULSION [None]
  - COUGH [None]
  - DEPRESSED LEVEL OF CONSCIOUSNESS [None]
  - DYSPHAGIA [None]
  - GENERAL PHYSICAL HEALTH DETERIORATION [None]
  - HAEMODYNAMIC INSTABILITY [None]
  - HEADACHE [None]
  - HYPERKALAEMIA [None]
  - HYPERLACTACIDAEMIA [None]
  - HYPOTENSION [None]
  - INCONTINENCE [None]
  - MALNUTRITION [None]
  - NAUSEA [None]
  - OEDEMA PERIPHERAL [None]
  - OXYGEN SATURATION DECREASED [None]
  - PAIN [None]
  - POST PROCEDURAL DRAINAGE [None]
  - PYREXIA [None]
  - STATUS EPILEPTICUS [None]
  - SUBDURAL EMPYEMA [None]
  - THROMBOSIS [None]
  - UNRESPONSIVE TO STIMULI [None]
  - VOMITING [None]
